FAERS Safety Report 17336004 (Version 1)
Quarter: 2020Q1

REPORT INFORMATION
  Report Type: Other
  Country: US (occurrence: US)
  Receive Date: 20200128
  Receipt Date: 20200128
  Transmission Date: 20200409
  Serious: Yes (Other)
  Sender: FDA-Public Use
  Company Number: US-DEXPHARM-20200071

PATIENT
  Age: 31 Year
  Sex: Male

DRUGS (6)
  1. DIPHENHYDRAMINE. [Concomitant]
     Active Substance: DIPHENHYDRAMINE
  2. DEXAMETHASONE. [Suspect]
     Active Substance: DEXAMETHASONE
  3. METHYLPREDNISOLONE. [Suspect]
     Active Substance: METHYLPREDNISOLONE
  4. EPINEPHRINE. [Concomitant]
     Active Substance: EPINEPHRINE
  5. HYDROCORTISONE. [Suspect]
     Active Substance: HYDROCORTISONE
  6. EPINEPHRINE. [Concomitant]
     Active Substance: EPINEPHRINE

REACTIONS (1)
  - Dermatitis bullous [Unknown]
